FAERS Safety Report 23596994 (Version 1)
Quarter: 2024Q1

REPORT INFORMATION
  Report Type: Spontaneous
  Country: CN (occurrence: CN)
  Receive Date: 20240305
  Receipt Date: 20240305
  Transmission Date: 20240410
  Serious: Yes (Life-Threatening, Hospitalization)
  Sender: FDA-Public Use
  Company Number: CN-BAYER-2024A032974

PATIENT
  Age: 69 Year
  Sex: Female

DRUGS (2)
  1. XARELTO [Suspect]
     Active Substance: RIVAROXABAN
     Indication: Anticoagulant therapy
     Dosage: 10 MG, QD
     Route: 048
     Dates: start: 20240102, end: 20240212
  2. CLOPIDOGREL BISULFATE [Suspect]
     Active Substance: CLOPIDOGREL BISULFATE
     Indication: Antiplatelet therapy
     Dosage: 50 MG, QD
     Route: 048
     Dates: start: 20240102, end: 20240212

REACTIONS (7)
  - Upper gastrointestinal haemorrhage [Recovering/Resolving]
  - Blood pressure immeasurable [Recovering/Resolving]
  - Vomiting [Recovering/Resolving]
  - Gastrointestinal sounds abnormal [Recovering/Resolving]
  - Labelled drug-drug interaction issue [Unknown]
  - Abdominal pain upper [Recovering/Resolving]
  - Off label use [Unknown]

NARRATIVE: CASE EVENT DATE: 20240101
